FAERS Safety Report 4291041-6 (Version None)
Quarter: 2004Q1

REPORT INFORMATION
  Report Type: 
  Country: None (occurrence: None)
  Receive Date: 20040209
  Receipt Date: 20040127
  Transmission Date: 20041129
  Serious: Yes (Life-Threatening, Disabling)
  Sender: FDA-Public Use
  Company Number: 2003040074

PATIENT
  Age: 63 Year
  Sex: Female

DRUGS (8)
  1. CARDURA XL [Suspect]
     Indication: HYPERTENSION
     Dosage: 4 MG DAILY ORAL
     Route: 048
     Dates: start: 20030901, end: 20030919
  2. TELMISARTAN [Concomitant]
  3. MICARDIS HCT (HYDROCHLOROTHIAZIDE, TELMISARTAN) [Concomitant]
  4. DILTIAZEM HYDROCHLORIDE [Concomitant]
  5. IPRATROPIUM BROMIDE [Concomitant]
  6. COMBIVENT [Concomitant]
  7. FLUTICASONE PROPIONATE [Concomitant]
  8. BENDROFLUMETHIAZIDE [Concomitant]

REACTIONS (2)
  - OEDEMA PERIPHERAL [None]
  - PULMONARY OEDEMA [None]
